FAERS Safety Report 18051830 (Version 7)
Quarter: 2022Q1

REPORT INFORMATION
  Report Type: Report from Study
  Country: DE (occurrence: DE)
  Receive Date: 20200721
  Receipt Date: 20220208
  Transmission Date: 20220423
  Serious: Yes (Death, Hospitalization, Other)
  Sender: FDA-Public Use
  Company Number: DE-JNJFOC-20200721822

PATIENT
  Age: 7 Decade
  Sex: Male

DRUGS (11)
  1. SIMPONI [Suspect]
     Active Substance: GOLIMUMAB
     Indication: Rheumatoid arthritis
     Route: 058
     Dates: start: 201911, end: 20200710
  2. METHOTREXATE (METHOTREXATE SODIUM) [Suspect]
     Active Substance: METHOTREXATE SODIUM
     Indication: Rheumatoid arthritis
     Route: 065
     Dates: start: 202007
  3. METHOTREXATE (METHOTREXATE SODIUM) [Suspect]
     Active Substance: METHOTREXATE SODIUM
     Route: 065
  4. FOLIC ACID [Concomitant]
     Active Substance: FOLIC ACID
  5. PREDNISOLONE [Concomitant]
     Active Substance: PREDNISOLONE
  6. PREDNISONE [Concomitant]
     Active Substance: PREDNISONE
  7. NOVALGIN (METAMIZOLE SODIUM) [Concomitant]
     Active Substance: METAMIZOLE SODIUM
  8. CHOLECALCIFEROL [Concomitant]
     Active Substance: CHOLECALCIFEROL
  9. METOPROLOL [Concomitant]
     Active Substance: METOPROLOL
  10. ATORVASTATIN [Concomitant]
     Active Substance: ATORVASTATIN
  11. ASPIRIN [Concomitant]
     Active Substance: ASPIRIN

REACTIONS (14)
  - Bronchial carcinoma [Fatal]
  - Mitral valve stenosis [Unknown]
  - Mitral valve incompetence [Unknown]
  - Haematoma [Recovered/Resolved]
  - Left ventricular hypertrophy [Unknown]
  - Thyroid neoplasm [Not Recovered/Not Resolved]
  - Rheumatoid arthritis [Recovered/Resolved]
  - Rheumatoid arthritis [Recovered/Resolved]
  - Synovial cyst [Not Recovered/Not Resolved]
  - Osteoporosis [Unknown]
  - Diverticulum [Unknown]
  - Large intestine polyp [Unknown]
  - Benign prostatic hyperplasia [Unknown]
  - Cholelithiasis [Unknown]

NARRATIVE: CASE EVENT DATE: 20200515
